FAERS Safety Report 8025288-X (Version None)
Quarter: 2012Q1

REPORT INFORMATION
  Report Type: 
  Country: None (occurrence: None)
  Receive Date: 20120105
  Receipt Date: 20111227
  Transmission Date: 20120608
  Serious: Yes (Death)
  Sender: FDA-Public Use
  Company Number: US-JNJFOC-20111212375

PATIENT
  Age: 33 Year
  Sex: Male

DRUGS (5)
  1. DIPHENHYDRAMINE HCL [Suspect]
  2. CITALOPRAM [Suspect]
     Indication: ILL-DEFINED DISORDER
  3. TRAZODONE HCL [Suspect]
     Indication: ILL-DEFINED DISORDER
  4. MORPHINE [Suspect]
     Indication: ILL-DEFINED DISORDER
  5. DIPHENHYDRAMINE HCL [Suspect]
     Indication: ILL-DEFINED DISORDER

REACTIONS (4)
  - INTENTIONAL DRUG MISUSE [None]
  - CARDIAC ARREST [None]
  - RESPIRATORY ARREST [None]
  - TOXICITY TO VARIOUS AGENTS [None]
